FAERS Safety Report 5166920-8 (Version None)
Quarter: 2006Q4

REPORT INFORMATION
  Report Type: 
  Country: None (occurrence: None)
  Receive Date: 20061207
  Receipt Date: 20061026
  Transmission Date: 20070319
  Serious: Yes (Other)
  Sender: FDA-Public Use
  Company Number: US-ELI_LILLY_AND_COMPANY-US200610004866

PATIENT
  Age: 65 Year
  Sex: Female

DRUGS (3)
  1. HUMALOG MIX 75/25 [Suspect]
     Dates: start: 20030101, end: 20030101
  2. HUMALOG [Suspect]
     Dosage: SLIDING SCALE
     Dates: start: 20060101
  3. LANTUS [Concomitant]

REACTIONS (9)
  - BLINDNESS [None]
  - BLINDNESS UNILATERAL [None]
  - CATARACT [None]
  - MEDICAL DEVICE COMPLICATION [None]
  - PHARMACEUTICAL PRODUCT COMPLAINT [None]
  - RETINAL DETACHMENT [None]
  - RETINAL HAEMORRHAGE [None]
  - VISUAL ACUITY REDUCED [None]
  - VITRECTOMY [None]
